FAERS Safety Report 11609009 (Version 1)
Quarter: 2015Q4

REPORT INFORMATION
  Report Type: Spontaneous
  Country: US (occurrence: US)
  Receive Date: 20151007
  Receipt Date: 20151007
  Transmission Date: 20160304
  Serious: Yes (Hospitalization)
  Sender: FDA-Public Use
  Company Number: US-ABBVIE-15P-163-1476454-00

PATIENT

DRUGS (3)
  1. PREDNISONE. [Concomitant]
     Active Substance: PREDNISONE
     Indication: PRODUCT USED FOR UNKNOWN INDICATION
     Dosage: TAPERING OFF
  2. HUMIRA [Suspect]
     Active Substance: ADALIMUMAB
     Indication: PRODUCT USED FOR UNKNOWN INDICATION
     Route: 050
  3. 6-MP [Concomitant]
     Active Substance: MERCAPTOPURINE
     Indication: PRODUCT USED FOR UNKNOWN INDICATION

REACTIONS (11)
  - Appendix disorder [Unknown]
  - Drug ineffective [Unknown]
  - Adhesion [Unknown]
  - Gastrointestinal wall thickening [Unknown]
  - Condition aggravated [Unknown]
  - Feeling abnormal [Unknown]
  - Fatigue [Unknown]
  - Muscle atrophy [Unknown]
  - Abdominal adhesions [Unknown]
  - Abdominal pain [Unknown]
  - Appendicolith [Unknown]
